FAERS Safety Report 9720747 (Version 1)
Quarter: 2013Q4

REPORT INFORMATION
  Report Type: Spontaneous
  Country: US (occurrence: US)
  Receive Date: 20131129
  Receipt Date: 20131129
  Transmission Date: 20140711
  Serious: Yes (Hospitalization, Other)
  Sender: FDA-Public Use
  Company Number: PHEH2013US024901

PATIENT
  Sex: Female

DRUGS (6)
  1. EXELON PATCH [Suspect]
     Indication: DEMENTIA ALZHEIMER^S TYPE
     Dosage: 4.5 MG, QD
     Route: 062
  2. EXELON PATCH [Suspect]
     Dosage: 1.5 PATCHE DAILY
     Route: 062
  3. NAMENDA [Concomitant]
     Dosage: UNK UKN, UNK
  4. CITALOPRAM [Concomitant]
     Dosage: UNK UKN, UNK
  5. ASA [Concomitant]
     Dosage: UNK UKN, UNK
  6. DIOVAN [Concomitant]
     Dosage: 80 MG, QD
     Route: 048

REACTIONS (5)
  - Malaise [Unknown]
  - Diarrhoea [Unknown]
  - Vomiting [Unknown]
  - Drug administration error [Unknown]
  - Drug prescribing error [Unknown]
